FAERS Safety Report 6302856-4 (Version None)
Quarter: 2009Q3

REPORT INFORMATION
  Report Type: 
  Country: None (occurrence: None)
  Receive Date: 20090810
  Receipt Date: 20090728
  Transmission Date: 20100115
  Serious: Yes (Hospitalization)
  Sender: FDA-Public Use
  Company Number: GB-ELI_LILLY_AND_COMPANY-GB200907006465

PATIENT
  Age: 31 Year
  Sex: Female

DRUGS (2)
  1. PROZAC [Suspect]
     Indication: POSTPARTUM DEPRESSION
     Dosage: UNK, UNKNOWN
     Route: 065
  2. LANTUS [Concomitant]
     Dosage: 1000 IU, UNK
     Route: 058

REACTIONS (3)
  - HYPOGLYCAEMIA [None]
  - HYPOKALAEMIA [None]
  - SUICIDE ATTEMPT [None]
